APPROVED DRUG PRODUCT: STERILE WATER FOR INJECTION
Active Ingredient: STERILE WATER FOR INJECTION
Strength: 100% (20ML)
Dosage Form/Route: LIQUID;N/A
Application: A217341 | Product #002 | TE Code: AP
Applicant: AMERICAN REGENT INC
Approved: Aug 29, 2023 | RLD: No | RS: No | Type: RX